FAERS Safety Report 10063751 (Version 3)
Quarter: 2014Q2

REPORT INFORMATION
  Report Type: Report from Study
  Country: RU (occurrence: RU)
  Receive Date: 20140408
  Receipt Date: 20140421
  Transmission Date: 20141212
  Serious: Yes (Hospitalization)
  Sender: FDA-Public Use
  Company Number: RU-AMGEN-RUSCT2014023596

PATIENT
  Age: 54 Year
  Sex: Female
  Weight: 68.4 kg

DRUGS (13)
  1. DENOSUMAB [Suspect]
     Indication: PLASMA CELL MYELOMA
     Dosage: 120 MG, UNK
     Route: 065
     Dates: start: 20140306
  2. CYCLOPHOSPHAMIDE [Concomitant]
     Dosage: UNK
     Dates: start: 20140312
  3. BORTEZOMIB [Concomitant]
     Dosage: UNK
     Dates: start: 20140312
  4. DEXAMETHASONE [Concomitant]
     Dosage: UNK
     Dates: start: 20140312
  5. ERYTHROCYTES [Concomitant]
     Dosage: 1 UNK, UNK
     Route: 042
     Dates: start: 20140301, end: 20140306
  6. LEKOVIT CA [Concomitant]
     Dosage: 500 MG, UNK
     Route: 048
     Dates: start: 20140306
  7. ACETYLSALICYLIC ACID [Concomitant]
     Dosage: 100 MG, UNK
     Route: 048
     Dates: start: 20140205
  8. OMEPRAZOLE [Concomitant]
     Dosage: 20 MG, UNK
     Route: 048
     Dates: start: 20140205
  9. ALLOPURINOLUM [Concomitant]
     Dosage: 100 MG, UNK
     Route: 048
     Dates: start: 20140218
  10. ENALAPRIL [Concomitant]
     Dosage: 5-10 MG, UNK
     Route: 048
     Dates: start: 20140220
  11. KETOPROFEN [Concomitant]
     Dosage: 2 ML, UNK
     Route: 030
     Dates: start: 20140205
  12. PENTOXIFYLLINE [Concomitant]
     Dosage: 5 ML, UNK
     Route: 042
     Dates: start: 20140208
  13. CLEXANE [Concomitant]
     Dosage: 0.4 ML, UNK
     Route: 058
     Dates: start: 20140208

REACTIONS (1)
  - Blood creatinine increased [Recovered/Resolved]
